FAERS Safety Report 14244246 (Version 1)
Quarter: 2017Q4

REPORT INFORMATION
  Report Type: Report from Study
  Country: CA (occurrence: CA)
  Receive Date: 20171201
  Receipt Date: 20171201
  Transmission Date: 20180321
  Serious: Yes (Hospitalization)
  Sender: FDA-Public Use
  Company Number: CA-JNJFOC-20171136580

PATIENT
  Age: 26 Year
  Sex: Male
  Weight: 79.7 kg

DRUGS (2)
  1. REMICADE [Suspect]
     Active Substance: INFLIXIMAB
     Indication: CROHN^S DISEASE
     Dosage: STRENGTH = 100 MG
     Route: 042
  2. IMURAN [Concomitant]
     Active Substance: AZATHIOPRINE
     Route: 065

REACTIONS (1)
  - Salmonellosis [Recovered/Resolved]

NARRATIVE: CASE EVENT DATE: 20171101
